FAERS Safety Report 8194700-8 (Version None)
Quarter: 2012Q1

REPORT INFORMATION
  Report Type: 
  Country: None (occurrence: None)
  Receive Date: 20120308
  Receipt Date: 20110201
  Transmission Date: 20120608
  Serious: No
  Sender: FDA-Public Use
  Company Number: US-GLAXOSMITHKLINE-A0911149A

PATIENT
  Age: 49 Year
  Sex: Female

DRUGS (1)
  1. NICORETTE [Suspect]
     Indication: EX-TOBACCO USER
     Dates: start: 20110127, end: 20110129

REACTIONS (4)
  - CONSTIPATION [None]
  - ABDOMINAL DISTENSION [None]
  - EXPIRED DRUG ADMINISTERED [None]
  - GASTRIC DISORDER [None]
